FAERS Safety Report 16182611 (Version 1)
Quarter: 2019Q2

REPORT INFORMATION
  Report Type: Other
  Country: TW (occurrence: TW)
  Receive Date: 20190411
  Receipt Date: 20190411
  Transmission Date: 20190711
  Serious: Yes (Death)
  Sender: FDA-Public Use
  Company Number: TW-AJANTA PHARMA USA INC.-2065676

PATIENT
  Age: 75 Year
  Sex: Male

DRUGS (1)
  1. RANITIDINE (ANDA 209859) [Suspect]
     Active Substance: RANITIDINE
     Indication: PEPTIC ULCER
     Route: 042

REACTIONS (1)
  - Anaphylactic reaction [Fatal]
